FAERS Safety Report 25357657 (Version 2)
Quarter: 2025Q2

REPORT INFORMATION
  Report Type: Spontaneous
  Country: FR (occurrence: FR)
  Receive Date: 20250526
  Receipt Date: 20250620
  Transmission Date: 20250716
  Serious: Yes (Other)
  Sender: REGENERON
  Company Number: FR-BAYER-2025A067759

PATIENT
  Age: 70 Year
  Sex: Male

DRUGS (3)
  1. EYLEA [Suspect]
     Active Substance: AFLIBERCEPT
     Indication: Diabetic retinal oedema
     Route: 031
     Dates: start: 20250312, end: 20250312
  2. EYLEA [Concomitant]
     Active Substance: AFLIBERCEPT
     Indication: Product used for unknown indication
     Route: 031
     Dates: start: 20250521, end: 20250521
  3. EYLEA [Concomitant]
     Active Substance: AFLIBERCEPT
     Indication: Product used for unknown indication
     Route: 031
     Dates: start: 20250528, end: 20250528

REACTIONS (4)
  - Vitreoretinal traction syndrome [Not Recovered/Not Resolved]
  - Vitreous adhesions [Not Recovered/Not Resolved]
  - Vitreous disorder [Not Recovered/Not Resolved]
  - Epiretinal membrane [Not Recovered/Not Resolved]

NARRATIVE: CASE EVENT DATE: 20250515
